FAERS Safety Report 23913501 (Version 2)
Quarter: 2024Q2

REPORT INFORMATION
  Report Type: Spontaneous
  Country: RU (occurrence: RU)
  Receive Date: 20240529
  Receipt Date: 20240603
  Transmission Date: 20240716
  Serious: Yes (Other)
  Sender: FDA-Public Use
  Company Number: RU-JNJFOC-20240564241

PATIENT
  Age: 72 Year
  Sex: Male
  Weight: 61 kg

DRUGS (2)
  1. RISPERIDONE [Suspect]
     Active Substance: RISPERIDONE
     Indication: Vascular dementia
     Route: 048
     Dates: start: 20220621, end: 20220623
  2. MEMANTINE [Concomitant]
     Active Substance: MEMANTINE
     Indication: Vascular dementia
     Route: 048
     Dates: start: 20220406, end: 20220623

REACTIONS (1)
  - Atrial flutter [Unknown]

NARRATIVE: CASE EVENT DATE: 20220623
